FAERS Safety Report 6050409-8 (Version None)
Quarter: 2009Q1

REPORT INFORMATION
  Report Type: 
  Country: None (occurrence: None)
  Receive Date: 20090122
  Receipt Date: 20090122
  Transmission Date: 20090719
  Serious: Yes (Other)
  Sender: FDA-Public Use
  Company Number: None

PATIENT
  Sex: Female
  Weight: 84.55 kg

DRUGS (4)
  1. LISINOPRIL [Suspect]
     Dosage: 10MG TABLET 10 MG QD ORAL
     Route: 048
     Dates: start: 20081219, end: 20090121
  2. AXERT (AMLOTRIPTAN MALATE) [Concomitant]
  3. LIDOCAINE [Concomitant]
  4. PRAVACHOL [Concomitant]

REACTIONS (1)
  - COUGH [None]
